FAERS Safety Report 14741202 (Version 1)
Quarter: 2018Q2

REPORT INFORMATION
  Report Type: Spontaneous
  Country: GB (occurrence: GB)
  Receive Date: 20180410
  Receipt Date: 20180410
  Transmission Date: 20180711
  Serious: Yes (Hospitalization)
  Sender: FDA-Public Use
  Company Number: GB-ALLERGAN-1819460US

PATIENT
  Age: 50 Year
  Sex: Female

DRUGS (2)
  1. MESALAZINE - BP [Suspect]
     Active Substance: MESALAMINE
     Indication: PROCTITIS
     Dosage: 3 G, UNK
     Route: 048
     Dates: start: 20180125, end: 20180126
  2. LAXIDO [Concomitant]
     Active Substance: POLYETHYLENE GLYCOL 3350\POTASSIUM CHLORIDE\SODIUM BICARBONATE\SODIUM CHLORIDE

REACTIONS (4)
  - Off label use [Unknown]
  - Myocarditis [Recovered/Resolved]
  - Chest pain [Recovered/Resolved]
  - Troponin increased [Recovering/Resolving]

NARRATIVE: CASE EVENT DATE: 20180125
